FAERS Safety Report 9861333 (Version 1)
Quarter: 2014Q1

REPORT INFORMATION
  Report Type: Spontaneous
  Country: US (occurrence: None)
  Receive Date: 20140131
  Receipt Date: 20140131
  Transmission Date: 20141002
  Serious: Yes (Other)
  Sender: FDA-Public Use
  Company Number: None

PATIENT
  Age: 69 Year
  Sex: Male

DRUGS (5)
  1. EFFIENT [Suspect]
     Indication: THROMBOSIS
     Route: 048
     Dates: start: 20131004, end: 20131209
  2. METFORMIN HCL TABS [Concomitant]
  3. CLOPIDOGREL [Concomitant]
  4. PROMUS ELEMENT PLUS HEART STENT [Concomitant]
  5. LORATIDINE [Concomitant]

REACTIONS (1)
  - Blood urine present [None]
